FAERS Safety Report 12579889 (Version 1)
Quarter: 2016Q3

REPORT INFORMATION
  Report Type: Spontaneous
  Country: PL (occurrence: PL)
  Receive Date: 20160721
  Receipt Date: 20160721
  Transmission Date: 20161109
  Serious: Yes (Other)
  Sender: FDA-Public Use
  Company Number: PL-TEVA-678857ISR

PATIENT
  Age: 12 Year
  Sex: Male

DRUGS (2)
  1. RITUXIMAB [Interacting]
     Active Substance: RITUXIMAB
     Indication: NEPHROTIC SYNDROME
  2. MYCOPHENOLATE MOFETIL. [Suspect]
     Active Substance: MYCOPHENOLATE MOFETIL
     Indication: IMMUNOSUPPRESSION
     Dosage: FULL DOSE OF MMF

REACTIONS (2)
  - Drug interaction [Recovering/Resolving]
  - Neutrophil Pelger-Huet anomaly present [Recovering/Resolving]
